FAERS Safety Report 7422846-8 (Version None)
Quarter: 2011Q2

REPORT INFORMATION
  Report Type: 
  Country: None (occurrence: None)
  Receive Date: 20110419
  Receipt Date: 20110411
  Transmission Date: 20111010
  Serious: Yes (Hospitalization)
  Sender: FDA-Public Use
  Company Number: FR-SANOFI-AVENTIS-2011SA003768

PATIENT
  Age: 83 Year
  Sex: Male

DRUGS (7)
  1. ELISOR [Suspect]
     Route: 048
     Dates: start: 20100830, end: 20110106
  2. ARAVA [Suspect]
     Indication: RHEUMATOID ARTHRITIS
     Route: 048
     Dates: start: 20030101, end: 20100830
  3. METFORMIN [Concomitant]
     Indication: TYPE 2 DIABETES MELLITUS
     Route: 048
     Dates: start: 20050101
  4. CARDENSIEL [Suspect]
     Route: 048
     Dates: start: 20100830, end: 20110106
  5. PLAVIX [Suspect]
     Route: 048
     Dates: start: 20100830, end: 20110106
  6. ASPEGIC 325 [Suspect]
     Route: 048
     Dates: start: 20100830, end: 20110106
  7. PREDNISONE [Concomitant]
     Indication: RHEUMATOID ARTHRITIS
     Route: 048
     Dates: start: 20030101

REACTIONS (5)
  - PYREXIA [None]
  - AGRANULOCYTOSIS [None]
  - INFECTION [None]
  - MYOCARDIAL INFARCTION [None]
  - NEUTROPENIA [None]
